FAERS Safety Report 7018128-9 (Version None)
Quarter: 2010Q3

REPORT INFORMATION
  Report Type: 
  Country: None (occurrence: None)
  Receive Date: 20100928
  Receipt Date: 20100920
  Transmission Date: 20110219
  Serious: Yes (Other)
  Sender: FDA-Public Use
  Company Number: US-ROCHE-716252

PATIENT
  Age: 57 Year
  Sex: Female

DRUGS (6)
  1. TRASTUZUMAB [Suspect]
     Indication: BREAST CANCER
     Dosage: ON DAY 1, WEEK 1 ONLY
     Route: 042
     Dates: start: 20100520
  2. TRASTUZUMAB [Suspect]
     Route: 042
     Dates: start: 20100527
  3. CARBOPLATIN [Suspect]
     Indication: BREAST CANCER
     Route: 042
     Dates: start: 20100520
  4. DOCETAXEL [Suspect]
     Indication: BREAST CANCER
     Route: 042
     Dates: start: 20100520
  5. LAPATINIB [Suspect]
     Indication: BREAST CANCER
     Route: 048
     Dates: start: 20100520
  6. PEGFILGRASTIM [Concomitant]

REACTIONS (2)
  - HYPOKALAEMIA [None]
  - NEUTROPENIA [None]
